FAERS Safety Report 5468463-0 (Version None)
Quarter: 2007Q3

REPORT INFORMATION
  Report Type: 
  Country: None (occurrence: None)
  Receive Date: 20070926
  Receipt Date: 20070607
  Transmission Date: 20080115
  Serious: No
  Sender: FDA-Public Use
  Company Number: US-BRISTOL-MYERS SQUIBB COMPANY-13806724

PATIENT
  Sex: Female

DRUGS (9)
  1. ORENCIA [Suspect]
     Dates: start: 20060801, end: 20070501
  2. ISOSORBIDE MONONITRATE [Concomitant]
  3. METHOTREXATE [Concomitant]
  4. LIPITOR [Concomitant]
  5. FOLGARD [Concomitant]
  6. DIOVAN [Concomitant]
  7. LOPRESSOR [Concomitant]
  8. NEXIUM [Concomitant]
  9. ASPIRIN [Concomitant]

REACTIONS (1)
  - RASH [None]
